FAERS Safety Report 9331348 (Version 1)
Quarter: 2013Q2

REPORT INFORMATION
  Report Type: Spontaneous
  Country: US (occurrence: US)
  Receive Date: 20130605
  Receipt Date: 20130605
  Transmission Date: 20140414
  Serious: No
  Sender: FDA-Public Use
  Company Number: US-TARO-2013P1000484

PATIENT
  Sex: Female

DRUGS (1)
  1. CETIRIZINE HCL ORAL SOLUTION ALLERGY 1 MG/ML OTC [Suspect]

REACTIONS (2)
  - Conjunctivitis infective [Not Recovered/Not Resolved]
  - Ocular hyperaemia [Not Recovered/Not Resolved]
